FAERS Safety Report 10590045 (Version 1)
Quarter: 2014Q4

REPORT INFORMATION
  Report Type: Spontaneous
  Country: US (occurrence: None)
  Receive Date: 20141117
  Receipt Date: 20141117
  Transmission Date: 20150529
  Serious: No
  Sender: FDA-Public Use
  Company Number: None

PATIENT
  Age: 66 Year
  Sex: Female

DRUGS (1)
  1. INTRON A [Suspect]
     Active Substance: INTERFERON ALFA-2B
     Indication: MALIGNANT MELANOMA
     Dosage: 1.9 ML   TUES, THURS, SAT  --
     Dates: start: 20141111, end: 20141111

REACTIONS (5)
  - Chills [None]
  - Fatigue [None]
  - Pyrexia [None]
  - Tremor [None]
  - Headache [None]

NARRATIVE: CASE EVENT DATE: 20141111
